FAERS Safety Report 19878373 (Version 1)
Quarter: 2021Q3

REPORT INFORMATION
  Report Type: Report from Study
  Country: CA (occurrence: CA)
  Receive Date: 20210924
  Receipt Date: 20210924
  Transmission Date: 20211014
  Serious: Yes (Hospitalization)
  Sender: FDA-Public Use
  Company Number: CA-NALPROPION PHARMACEUTICALS INC.-2021-014052

PATIENT

DRUGS (4)
  1. PANTOPRAZOLE [Concomitant]
     Active Substance: PANTOPRAZOLE
     Indication: HYPOTHYROIDISM
     Dosage: 1 IN 1 D
     Route: 048
  2. CONTRAVE [Suspect]
     Active Substance: BUPROPION HYDROCHLORIDE\NALTREXONE HYDROCHLORIDE
     Indication: WEIGHT CONTROL
     Dosage: 90MG/8MG, 2 TABLE IN MORNING, 2 TABLET IN EVENING
     Route: 048
     Dates: start: 2021, end: 20210903
  3. SYNTHROID [Concomitant]
     Active Substance: LEVOTHYROXINE SODIUM
     Indication: HYPOTHYROIDISM
     Dosage: 1 IN 1 D
     Route: 048
  4. KEFLEX [Concomitant]
     Active Substance: CEPHALEXIN
     Indication: NEPHROLITHIASIS
     Dosage: 1 IN 1 D
     Route: 048
     Dates: start: 20210903, end: 20210915

REACTIONS (5)
  - Nausea [Recovered/Resolved]
  - Dry mouth [Recovered/Resolved]
  - Kidney infection [Unknown]
  - Nephrolithiasis [Not Recovered/Not Resolved]
  - Labelled drug-food interaction medication error [Unknown]

NARRATIVE: CASE EVENT DATE: 2021
